FAERS Safety Report 14719045 (Version 1)
Quarter: 2018Q2

REPORT INFORMATION
  Report Type: Other
  Country: GB (occurrence: GB)
  Receive Date: 20180405
  Receipt Date: 20180405
  Transmission Date: 20180711
  Serious: No
  Sender: FDA-Public Use
  Company Number: GB-LUPIN PHARMACEUTICALS INC.-2018-00070

PATIENT
  Age: 80 Year
  Sex: Female
  Weight: 58 kg

DRUGS (18)
  1. PARACETAMOL [Concomitant]
     Active Substance: ACETAMINOPHEN
     Indication: ILL-DEFINED DISORDER
     Dosage: TAKE TWO TABLETS EVERY FOUR HOURS AS REQUIRED
     Route: 065
     Dates: start: 20111125, end: 20171219
  2. TIMOPTOL [Concomitant]
     Active Substance: TIMOLOL
     Indication: ILL-DEFINED DISORDER
     Dosage: 1 DROP, BID, EACH EYE
     Route: 047
     Dates: start: 20100114, end: 20171219
  3. STEMETIL                           /00013304/ [Concomitant]
     Indication: ILL-DEFINED DISORDER
     Dosage: UNK, PRN (ONE WHEN REQUIRED TWICE A DAY FOR BALANCE)
     Route: 065
     Dates: start: 20151026, end: 20171219
  4. SODIUM PICOSULFATE [Concomitant]
     Active Substance: SODIUM PICOSULFATE
     Indication: ILL-DEFINED DISORDER
     Dosage: 10 ML, QD, AT NIGHT
     Route: 065
     Dates: start: 20100114, end: 20171219
  5. CASSIA SENNA [Concomitant]
     Active Substance: HERBALS\SENNOSIDES
     Indication: CONSTIPATION
     Dosage: UNK, PRN (TAKE 1 OR 2 AT NIGHT WHEN REQUIRED FOR CONSTIPATION)
     Route: 065
     Dates: start: 20110414, end: 20171219
  6. NORMACOL                           /00086101/ [Concomitant]
     Active Substance: SULFAMETHOXAZOLE\TRIMETHOPRIM
     Indication: ILL-DEFINED DISORDER
     Dosage: UNK, PRN (5 OR 10ML WHEN REQUIRED EVERY DAY)
     Route: 065
     Dates: start: 20170522, end: 20171219
  7. LISINOPRIL. [Suspect]
     Active Substance: LISINOPRIL
     Indication: PRODUCT USED FOR UNKNOWN INDICATION
     Dosage: UNK
     Route: 065
     Dates: start: 20091214
  8. VOLTAROL [Concomitant]
     Active Substance: DICLOFENAC SODIUM
     Indication: ILL-DEFINED DISORDER
     Dosage: APPLY THREE OR FOUR TIMES A DAY WHEN REQUIRED
     Route: 065
     Dates: start: 20170508, end: 20171219
  9. NABUMETONE. [Concomitant]
     Active Substance: NABUMETONE
     Indication: ARTHROPATHY
     Dosage: UNK, QD (TAKE TWO AT NIGHT FOR JOINTS)
     Route: 065
     Dates: start: 20110930, end: 20171219
  10. GLYCEROL [Concomitant]
     Active Substance: GLYCERIN
     Indication: ILL-DEFINED DISORDER
     Dosage: 1 DF, PRN (INSERT ONE AS NEEDED)
     Route: 065
     Dates: start: 20110414, end: 20171219
  11. DULCOLAX (BISACODYL) [Concomitant]
     Active Substance: BISACODYL
     Indication: ILL-DEFINED DISORDER
     Dosage: 1-2 WHEN REQUIRED TABLET DAILY BEFORE BEDTIME
     Route: 065
     Dates: start: 20140121, end: 20171219
  12. BISACODYL. [Concomitant]
     Active Substance: BISACODYL
     Indication: ILL-DEFINED DISORDER
     Dosage: 2 DF, QD,AT NIGHT
     Route: 065
     Dates: start: 20110930, end: 20171219
  13. LACTULOSE. [Concomitant]
     Active Substance: LACTULOSE
     Indication: ILL-DEFINED DISORDER
     Dosage: 15 ML, PRN, (BID, WHEN REQUIRED)
     Route: 065
     Dates: start: 20140425, end: 20171219
  14. FYBOGEL [Concomitant]
     Active Substance: PLANTAGO OVATA SEED
     Indication: ILL-DEFINED DISORDER
     Dosage: ASD
     Route: 065
     Dates: start: 20110415, end: 20171219
  15. NITROFURANTOIN. [Concomitant]
     Active Substance: NITROFURANTOIN
     Indication: ILL-DEFINED DISORDER
     Dosage: 1 DF, BID
     Route: 065
     Dates: start: 20171025, end: 20171123
  16. INFLUENZA VIRUS [Concomitant]
     Active Substance: INFLUENZA VIRUS VACCINE
     Indication: ILL-DEFINED DISORDER
     Dosage: UNK
     Route: 030
     Dates: start: 20170928, end: 20171110
  17. TIMOLOL. [Concomitant]
     Active Substance: TIMOLOL
     Indication: ILL-DEFINED DISORDER
     Dosage: 1 DROP, BID, EACH EYE
     Route: 047
     Dates: start: 20110414, end: 20171219
  18. PRUCALOPRIDE [Concomitant]
     Active Substance: PRUCALOPRIDE
     Indication: CONSTIPATION
     Dosage: 1 DF, PRN (1 TABLET DAILY WHEN REQUIRED FOR CONSTIPATION)
     Route: 065
     Dates: start: 20150805, end: 20171219

REACTIONS (2)
  - Dry mouth [Unknown]
  - Constipation [Unknown]

NARRATIVE: CASE EVENT DATE: 20091214
